FAERS Safety Report 7933308-3 (Version None)
Quarter: 2011Q4

REPORT INFORMATION
  Report Type: 
  Country: None (occurrence: None)
  Receive Date: 20111122
  Receipt Date: 20111116
  Transmission Date: 20120403
  Serious: Yes (Death, Hospitalization, Other)
  Sender: FDA-Public Use
  Company Number: JP-BAYER-200812276BYL

PATIENT
  Age: 62 Year
  Sex: Male
  Weight: 55 kg

DRUGS (39)
  1. NEXAVAR [Suspect]
     Dosage: 1 HOUR BEFORE BREAKFAST, 1 HOUR BEFORE DINNER
     Route: 048
  2. TOPSYM [Concomitant]
     Dosage: APPLICATION FOR RIGHT LEG
     Route: 061
  3. AMOBAN [Concomitant]
  4. MUCOSTA [Concomitant]
     Dosage: 30 MINS AFTER EACH MEAL
     Route: 048
     Dates: start: 20081117
  5. NEXAVAR [Suspect]
     Dosage: 1 HOUR BEFORE BREAKFAST, 1 HOUR BEFORE DINNER
     Route: 048
     Dates: start: 20081106, end: 20081115
  6. PURSENNID [Concomitant]
     Indication: CONSTIPATION
     Dosage: UNTIL 3 TIMES/DAY
     Route: 048
  7. TELEMINSOFT [Concomitant]
  8. OXYCONTIN [Concomitant]
     Dosage: 30 MINS AFTER BREAKFAST AND DINNER
     Route: 048
     Dates: start: 20081115, end: 20081128
  9. FENTANYL-100 [Concomitant]
     Route: 062
     Dates: start: 20081120, end: 20081120
  10. TRAVELMIN [Concomitant]
     Dosage: 30 MINS AFTER EACH MEAL
     Route: 048
     Dates: start: 20081129
  11. MAGMITT [Concomitant]
     Dosage: 30 MINS AFTER EACH MEAL
     Route: 048
  12. MAGMITT [Concomitant]
     Dosage: 30 MINS AFTER EACH MEAL
     Route: 048
     Dates: start: 20080803
  13. CEFDINIR [Concomitant]
     Indication: INFECTION PROPHYLAXIS
     Dosage: 30 MINS AFTER EACH MEAL
     Route: 048
  14. CLINDAMYCIN PHOSPHATE [Concomitant]
     Dosage: APPLICATION FOR LOWER THIGHS
     Route: 061
     Dates: start: 20090317
  15. TELEMINSOFT [Concomitant]
     Indication: CONSTIPATION
     Route: 054
  16. KERATINAMIN [Concomitant]
     Dosage: APPLICATION FOR RIGHT LEG
     Route: 061
  17. NEXAVAR [Suspect]
     Dosage: 1 HOUR BEFORE BREAKFAST, 1 HOUR BEFORE DINNER
     Route: 048
     Dates: start: 20090317, end: 20090713
  18. PURSENNID [Concomitant]
     Dosage: AS NEEDED, UNTIL 2 TIMES/DAY
     Route: 048
     Dates: start: 20081104
  19. AMIODARONE HCL [Concomitant]
     Dosage: 30 MINS AFTER EACH MEAL
     Route: 048
  20. PROCHLORPERAZINE [Concomitant]
     Indication: NAUSEA
     Dosage: UNTIL 4 TIMES/DAY
     Route: 048
     Dates: start: 20081116
  21. FENTANYL-100 [Concomitant]
     Dosage: 1 TIME/3 DAYS
     Route: 062
     Dates: start: 20081201
  22. FAMOTIDINE [Concomitant]
     Indication: PROPHYLAXIS AGAINST GASTROINTESTINAL ULCER
     Dosage: 30 MINUTES AFTER EACH BREAKFAST AND DINNER
     Route: 048
  23. FAMOTIDINE [Concomitant]
  24. NEXAVAR [Suspect]
     Dosage: 1 HOUR BEFORE BREAKFAST, 1 HOUR BEFORE DINNER
     Route: 048
     Dates: end: 20090803
  25. LAXOBERON [Concomitant]
     Route: 048
     Dates: start: 20081121
  26. PRIMPERAN TAB [Concomitant]
     Indication: NAUSEA
  27. MUCOSTA [Concomitant]
     Route: 048
     Dates: start: 20081111
  28. OXINORM [Concomitant]
     Route: 048
     Dates: start: 20081123
  29. PROCHLORPERAZINE [Concomitant]
     Dosage: 30 MINS AFTER EACH MEAL
     Route: 048
     Dates: start: 20081125
  30. PURSENNID [Concomitant]
     Dosage: AS NEEDED
     Route: 048
     Dates: start: 20080805
  31. LAXOBERON [Concomitant]
     Indication: CONSTIPATION
     Route: 048
  32. MAGMITT [Concomitant]
     Dosage: 30 MINS AFTER EACH MEAL
     Route: 048
     Dates: start: 20090331
  33. CEFDINIR [Concomitant]
  34. NEXAVAR [Suspect]
     Indication: RENAL CELL CARCINOMA
     Dosage: 1 HOUR BEFORE BREAKFAST, 1 HOUR BEFORE DINNER
     Route: 048
     Dates: start: 20080716, end: 20081101
  35. NEXAVAR [Suspect]
     Dosage: 1 HOUR BEFORE BREAKFAST, 1 HOUR BEFORE DINNER
     Route: 048
     Dates: start: 20081120, end: 20090316
  36. AMOBAN [Concomitant]
     Indication: INSOMNIA
     Dosage: UNTIL 1 TIME/DAY
     Route: 048
  37. PRIMPERAN TAB [Concomitant]
     Indication: PROPHYLAXIS
     Dosage: UNTIL 3 TIMES/DAY
     Route: 048
     Dates: end: 20081126
  38. OXINORM [Concomitant]
     Indication: PAIN
     Route: 048
     Dates: start: 20081115
  39. PROCHLORPERAZINE [Concomitant]
     Dosage: 30 MINS AFTER EACH MEAL
     Route: 048
     Dates: start: 20081124

REACTIONS (13)
  - PROTEIN TOTAL DECREASED [None]
  - ANAEMIA [None]
  - HYPOTHYROIDISM [None]
  - ASCITES [None]
  - OEDEMA PERIPHERAL [None]
  - BLOOD SODIUM DECREASED [None]
  - RENAL CELL CARCINOMA [None]
  - ALOPECIA [None]
  - DYSPNOEA [None]
  - HYPERTENSION [None]
  - PALMAR-PLANTAR ERYTHRODYSAESTHESIA SYNDROME [None]
  - WHITE BLOOD CELL COUNT DECREASED [None]
  - MALAISE [None]
